FAERS Safety Report 11748285 (Version 6)
Quarter: 2016Q2

REPORT INFORMATION
  Report Type: Report from Study
  Country: FR (occurrence: FR)
  Receive Date: 20151117
  Receipt Date: 20160621
  Transmission Date: 20160815
  Serious: Yes (Death, Hospitalization, Other)
  Sender: FDA-Public Use
  Company Number: PHHY2015FR146752

PATIENT
  Age: 65 Year
  Sex: Male
  Weight: 105.7 kg

DRUGS (4)
  1. AFINITOR [Suspect]
     Active Substance: EVEROLIMUS
     Indication: METASTATIC RENAL CELL CARCINOMA
     Dosage: 10 MG, UNK
     Route: 048
     Dates: start: 20150326, end: 20150613
  2. NOVORAPID [Concomitant]
     Active Substance: INSULIN ASPART
     Indication: PRODUCT USED FOR UNKNOWN INDICATION
     Dosage: 10-14-14 IU, UNK
     Route: 065
  3. LEVEMIR [Concomitant]
     Active Substance: INSULIN DETEMIR
     Indication: PRODUCT USED FOR UNKNOWN INDICATION
     Dosage: 34-0-32 IU, UNK
     Route: 065
  4. PARACETAMOL [Concomitant]
     Active Substance: ACETAMINOPHEN
     Indication: PRODUCT USED FOR UNKNOWN INDICATION
     Dosage: 1 G, QID
     Route: 065

REACTIONS (15)
  - Metastases to peritoneum [Unknown]
  - Decreased appetite [Unknown]
  - Cough [Unknown]
  - Chills [Unknown]
  - Mucosal inflammation [Recovered/Resolved]
  - Crepitations [Unknown]
  - Chest pain [Unknown]
  - Diarrhoea [Unknown]
  - Lung disorder [Recovered/Resolved with Sequelae]
  - Pyrexia [Unknown]
  - Dyspnoea [Unknown]
  - Malignant ascites [Fatal]
  - Breath sounds abnormal [Unknown]
  - Pulmonary embolism [Not Recovered/Not Resolved]
  - Vomiting [Unknown]

NARRATIVE: CASE EVENT DATE: 20150415
